FAERS Safety Report 9979733 (Version 1)
Quarter: 2014Q1

REPORT INFORMATION
  Report Type: Report from Study
  Country: US (occurrence: US)
  Receive Date: 20140306
  Receipt Date: 20140306
  Transmission Date: 20141002
  Serious: No
  Sender: FDA-Public Use
  Company Number: US-ABBVIE-13P-163-1172429-00

PATIENT
  Age: 56 Year
  Sex: Female
  Weight: 45.85 kg

DRUGS (4)
  1. HUMIRA [Suspect]
     Indication: RHEUMATOID ARTHRITIS
     Dates: start: 201007
  2. RECLAST [Concomitant]
     Indication: OSTEOPENIA
     Dates: start: 2010
  3. UNNAMED MEDICATION [Concomitant]
     Indication: THYROID DISORDER
  4. UNNAMED MEDICATION [Concomitant]
     Indication: SEASONAL ALLERGY

REACTIONS (8)
  - Fatigue [Not Recovered/Not Resolved]
  - Sjogren^s syndrome [Not Recovered/Not Resolved]
  - Osteopenia [Not Recovered/Not Resolved]
  - Joint instability [Not Recovered/Not Resolved]
  - Periarthritis [Not Recovered/Not Resolved]
  - Dry mouth [Not Recovered/Not Resolved]
  - Dry eye [Not Recovered/Not Resolved]
  - Arthralgia [Not Recovered/Not Resolved]
